FAERS Safety Report 22603768 (Version 1)
Quarter: 2023Q2

REPORT INFORMATION
  Report Type: Spontaneous
  Country: US (occurrence: US)
  Receive Date: 20230615
  Receipt Date: 20230615
  Transmission Date: 20230722
  Serious: No
  Sender: FDA-Public Use
  Company Number: US-ALXN-A202307754

PATIENT
  Sex: Female

DRUGS (1)
  1. ULTOMIRIS [Suspect]
     Active Substance: RAVULIZUMAB-CWVZ
     Indication: Atypical haemolytic uraemic syndrome
     Dosage: EVERY 8 WEEKS
     Route: 042
     Dates: start: 202104

REACTIONS (2)
  - Dermatitis contact [Not Recovered/Not Resolved]
  - Hyperaesthesia [Not Recovered/Not Resolved]
